FAERS Safety Report 11211478 (Version 1)
Quarter: 2015Q2

REPORT INFORMATION
  Report Type: Spontaneous
  Country: FR (occurrence: FR)
  Receive Date: 20150623
  Receipt Date: 20150623
  Transmission Date: 20150821
  Serious: Yes (Hospitalization)
  Sender: FDA-Public Use
  Company Number: PHHY2015FR074700

PATIENT
  Age: 64 Year
  Sex: Female

DRUGS (7)
  1. LEVOTHYROX [Suspect]
     Active Substance: LEVOTHYROXINE
     Indication: HYPOTHYROIDISM
     Route: 048
  2. NEBILOX [Suspect]
     Active Substance: NEBIVOLOL HYDROCHLORIDE
     Indication: ARRHYTHMIA
     Dosage: 5 MG, UNK
     Route: 048
  3. EXJADE [Suspect]
     Active Substance: DEFERASIROX
     Indication: SIDEROBLASTIC ANAEMIA
     Route: 048
     Dates: start: 2013
  4. XAGRID [Suspect]
     Active Substance: ANAGRELIDE HYDROCHLORIDE
     Indication: PRODUCT USED FOR UNKNOWN INDICATION
     Dosage: 0.5 MG, UNK
     Route: 065
  5. HYDREA [Suspect]
     Active Substance: HYDROXYUREA
     Indication: MYELODYSPLASTIC SYNDROME
     Dosage: 500 MG, UNK
     Route: 048
     Dates: start: 2012
  6. SEROPLEX [Suspect]
     Active Substance: ESCITALOPRAM OXALATE
     Indication: DEPRESSION
     Dosage: UNK
     Route: 048
     Dates: start: 2010
  7. ASPERGIC [Suspect]
     Active Substance: ASPIRIN LYSINE
     Indication: PLATELET AGGREGATION
     Route: 048
     Dates: start: 2010

REACTIONS (1)
  - Pulmonary arterial hypertension [Not Recovered/Not Resolved]

NARRATIVE: CASE EVENT DATE: 20150601
